FAERS Safety Report 8153661-8 (Version None)
Quarter: 2012Q1

REPORT INFORMATION
  Report Type: 
  Country: None (occurrence: None)
  Receive Date: 20120221
  Receipt Date: 20120213
  Transmission Date: 20120608
  Serious: Yes (Congenital Anomaly)
  Sender: FDA-Public Use
  Company Number: DE-SANOFI-AVENTIS-2012SA009203

PATIENT
  Sex: Male

DRUGS (3)
  1. PARTUSISTEN [Concomitant]
     Indication: TOCOLYSIS
     Route: 064
  2. LASIX [Suspect]
     Indication: OLIGURIA
     Dosage: PER IS BY MOTHER
     Route: 064
  3. LASIX [Suspect]
     Dosage: INTRAVENOUS INFUSION BY MOTHER
     Route: 064

REACTIONS (2)
  - FOETAL EXPOSURE TIMING UNSPECIFIED [None]
  - MENTAL RETARDATION [None]
